FAERS Safety Report 9231852 (Version 1)
Quarter: 2013Q2

REPORT INFORMATION
  Report Type: Spontaneous
  Country: US (occurrence: US)
  Receive Date: 20130415
  Receipt Date: 20130415
  Transmission Date: 20140414
  Serious: Yes (Other)
  Sender: FDA-Public Use
  Company Number: CHPA2013US006012

PATIENT
  Age: 71 Year
  Sex: Female

DRUGS (5)
  1. EXCEDRIN EXTRA STRENGTH [Suspect]
     Indication: CANCER PAIN
     Dosage: 1 DF, QD
  2. EXCEDRIN EXTRA STRENGTH [Suspect]
     Indication: PROCEDURAL PAIN
     Dosage: 1 DF, Q6H
  3. EXCEDRIN EXTRA STRENGTH [Suspect]
     Indication: PAIN
  4. ASPIRIN [Concomitant]
     Indication: PROCEDURAL PAIN
     Dosage: 1 DF, Q6H
  5. ASPIRIN [Concomitant]
     Dosage: 1 DF, QD

REACTIONS (6)
  - Neuroendocrine carcinoma of the skin [Recovered/Resolved]
  - Malignant melanoma [Unknown]
  - Cancer pain [Unknown]
  - Therapeutic response unexpected [Unknown]
  - Off label use [Unknown]
  - Underdose [Unknown]
